FAERS Safety Report 9331999 (Version 3)
Quarter: 2013Q3

REPORT INFORMATION
  Report Type: Spontaneous
  Country: AU (occurrence: AU)
  Receive Date: 20130605
  Receipt Date: 20130715
  Transmission Date: 20140515
  Serious: Yes (Life-Threatening, Hospitalization, Disabling, Other)
  Sender: FDA-Public Use
  Company Number: AU-009507513-1305AUS013738

PATIENT
  Age: 62 Year
  Sex: Male
  Weight: 73 kg

DRUGS (2)
  1. VICTRELIS 200 MG [Suspect]
     Indication: HEPATITIS C
     Dosage: 2400 MG, DAILY
     Route: 048
     Dates: start: 20130228, end: 20130515
  2. PEGATRON [Suspect]
     Indication: HEPATITIS C
     Dosage: UNK
     Dates: start: 20130131, end: 20130515

REACTIONS (5)
  - Cardiac failure congestive [Not Recovered/Not Resolved]
  - Anaemia [Recovered/Resolved]
  - Encephalopathy [Recovered/Resolved]
  - Renal failure [Unknown]
  - Cardiac failure [Unknown]
